FAERS Safety Report 15454274 (Version 1)
Quarter: 2018Q4

REPORT INFORMATION
  Report Type: Spontaneous
  Country: ES (occurrence: ES)
  Receive Date: 20181002
  Receipt Date: 20181002
  Transmission Date: 20190204
  Serious: Yes (Hospitalization, Other)
  Sender: FDA-Public Use
  Company Number: ES-OC PHARMA-000013

PATIENT
  Age: 24 Year
  Sex: Female

DRUGS (1)
  1. LEVONORGESTREL. [Suspect]
     Active Substance: LEVONORGESTREL
     Route: 015

REACTIONS (2)
  - Ovarian necrosis [Recovered/Resolved]
  - Transmission of an infectious agent via product [Recovered/Resolved]
